FAERS Safety Report 8922668 (Version 2)
Quarter: 2012Q4

REPORT INFORMATION
  Report Type: 
  Country: US (occurrence: US)
  Receive Date: 20121125
  Receipt Date: 20121217
  Transmission Date: 20130627
  Serious: Yes (Other)
  Sender: FDA-Public Use
  Company Number: US-BRISTOL-MYERS SQUIBB COMPANY-17135096

PATIENT
  Age: 63 Year
  Sex: Female

DRUGS (3)
  1. ORENCIA [Suspect]
     Dosage: last dose of Orencia was in Aug2012
     Route: 042
     Dates: start: 201207
  2. FLU VACCINE [Suspect]
  3. METHOTREXATE [Suspect]

REACTIONS (4)
  - Joint dislocation [Unknown]
  - Nausea [Unknown]
  - Pain [Unknown]
  - Arthritis [Unknown]
